FAERS Safety Report 18253127 (Version 5)
Quarter: 2021Q1

REPORT INFORMATION
  Report Type: Report from Study
  Country: JP (occurrence: JP)
  Receive Date: 20200910
  Receipt Date: 20210312
  Transmission Date: 20210419
  Serious: Yes (Hospitalization, Other)
  Sender: FDA-Public Use
  Company Number: JP-GLAXOSMITHKLINE-JP2019JPN156516

PATIENT
  Age: 6 Decade
  Sex: Male
  Weight: 58 kg

DRUGS (45)
  1. MEPOLIZUMAB [Suspect]
     Active Substance: MEPOLIZUMAB
     Dosage: 300MG EVERY 4 WEEKS
     Route: 058
     Dates: start: 20190204, end: 20190204
  2. MEPOLIZUMAB [Suspect]
     Active Substance: MEPOLIZUMAB
     Dosage: 300MG EVERY 4 WEEKS
     Route: 058
     Dates: start: 20200316, end: 20200316
  3. MEPOLIZUMAB [Suspect]
     Active Substance: MEPOLIZUMAB
     Dosage: 300MG EVERY 4 WEEKS
     Route: 058
     Dates: start: 20200608, end: 20200608
  4. PREDNISOLONE. [Concomitant]
     Active Substance: PREDNISOLONE
     Dosage: 10 MG, 1D
     Dates: start: 20201104
  5. MEPOLIZUMAB [Suspect]
     Active Substance: MEPOLIZUMAB
     Dosage: 300 MG
     Route: 058
     Dates: start: 20190426, end: 20190426
  6. MEPOLIZUMAB [Suspect]
     Active Substance: MEPOLIZUMAB
     Dosage: 300MG EVERY 4 WEEKS
     Route: 058
     Dates: start: 20200120, end: 20200120
  7. MEPOLIZUMAB [Suspect]
     Active Substance: MEPOLIZUMAB
     Dosage: 300MG EVERY 4 WEEKS
     Route: 058
     Dates: start: 20200217, end: 20200217
  8. PREDNISOLONE. [Concomitant]
     Active Substance: PREDNISOLONE
     Dosage: 20MG AND 15MG ON ALTERNATE DAYS
     Dates: start: 20200923, end: 20200928
  9. AZANIN TABLETS [Concomitant]
     Dosage: 50 MG
     Dates: start: 20191216, end: 20200120
  10. MEPOLIZUMAB [Suspect]
     Active Substance: MEPOLIZUMAB
     Dosage: 300MG EVERY 4 WEEKS
     Route: 058
     Dates: start: 20191118, end: 20191118
  11. PREDNISOLONE. [Concomitant]
     Active Substance: PREDNISOLONE
     Dosage: 4 MG, 1D
     Dates: start: 20190702, end: 20190729
  12. PREDNISOLONE. [Concomitant]
     Active Substance: PREDNISOLONE
     Dosage: 15 MG, 1D
     Dates: start: 20200929, end: 20201006
  13. MEPOLIZUMAB [Suspect]
     Active Substance: MEPOLIZUMAB
     Dosage: 300 MG
     Route: 058
     Dates: start: 20190603, end: 20190603
  14. MEPOLIZUMAB [Suspect]
     Active Substance: MEPOLIZUMAB
     Dosage: 300MG EVERY 4 WEEKS
     Route: 058
     Dates: start: 20190701, end: 20190701
  15. MEPOLIZUMAB [Suspect]
     Active Substance: MEPOLIZUMAB
     Dosage: 300MG EVERY 4 WEEKS
     Route: 058
     Dates: start: 20200706, end: 20200706
  16. BISOPROLOL FUMARATE. [Concomitant]
     Active Substance: BISOPROLOL FUMARATE
     Indication: CARDIAC DISORDER
  17. TAKECAB TABLETS [Concomitant]
     Active Substance: VONOPRAZAN FUMARATE
     Indication: GASTRITIS PROPHYLAXIS
  18. BONOTEO TABLETS [Concomitant]
     Indication: OSTEOPOROSIS PROPHYLAXIS
  19. MEPOLIZUMAB [Suspect]
     Active Substance: MEPOLIZUMAB
     Dosage: 300MG EVERY 4 WEEKS
     Route: 058
     Dates: start: 20190729, end: 20190729
  20. MEPOLIZUMAB [Suspect]
     Active Substance: MEPOLIZUMAB
     Dosage: 300MG EVERY 4 WEEKS
     Route: 058
     Dates: start: 20190925, end: 20190925
  21. MEPOLIZUMAB [Suspect]
     Active Substance: MEPOLIZUMAB
     Dosage: 300MG EVERY 4 WEEKS
     Route: 058
     Dates: start: 20200413, end: 20200413
  22. PREDNISOLONE. [Concomitant]
     Active Substance: PREDNISOLONE
     Dosage: 3 MG, 1D
     Dates: start: 20190730, end: 20190826
  23. PREDNISOLONE. [Concomitant]
     Active Substance: PREDNISOLONE
     Dosage: 1 MG, 1D
     Dates: start: 20190926, end: 20191021
  24. VONOPRAZAN FUMARATE [Concomitant]
     Active Substance: VONOPRAZAN FUMARATE
     Dosage: UNK
  25. MEPOLIZUMAB [Suspect]
     Active Substance: MEPOLIZUMAB
     Indication: EOSINOPHILIC GRANULOMATOSIS WITH POLYANGIITIS
     Dosage: 300MG EVERY 4 WEEKS
     Route: 058
     Dates: start: 20190108, end: 20190108
  26. MEPOLIZUMAB [Suspect]
     Active Substance: MEPOLIZUMAB
     Dosage: 300MG EVERY 4 WEEKS
     Route: 058
     Dates: start: 20200511, end: 20200511
  27. PREDNISOLONE. [Concomitant]
     Active Substance: PREDNISOLONE
     Indication: EOSINOPHILIC GRANULOMATOSIS WITH POLYANGIITIS
     Dosage: 9 MG, 1D
     Dates: end: 20190204
  28. PREDNISOLONE. [Concomitant]
     Active Substance: PREDNISOLONE
     Dosage: 5 MG, 1D
     Dates: start: 20190604, end: 20190701
  29. PREDNISOLONE. [Concomitant]
     Active Substance: PREDNISOLONE
     Dosage: 15MG AND 10MG ON ALTERNATE DAYS
     Dates: start: 20201007, end: 20201103
  30. AZANIN TABLETS [Concomitant]
     Indication: EOSINOPHILIC GRANULOMATOSIS WITH POLYANGIITIS
     Dosage: 100 MG, 1D
     Dates: end: 20191215
  31. MEPOLIZUMAB [Suspect]
     Active Substance: MEPOLIZUMAB
     Dosage: 300MG EVERY 4 WEEKS
     Route: 058
     Dates: start: 20190826, end: 20190826
  32. PREDNISOLONE. [Concomitant]
     Active Substance: PREDNISOLONE
     Dosage: 25 MG, 1D
     Dates: start: 20200908, end: 20200922
  33. BISOPROLOL FUMARATE. [Concomitant]
     Active Substance: BISOPROLOL FUMARATE
     Indication: EOSINOPHILIC GRANULOMATOSIS WITH POLYANGIITIS
     Dosage: 0.625 MG, QD
  34. MINODRONIC ACID HYDRATE [Concomitant]
     Active Substance: MINODRONIC ACID
     Indication: OSTEOPOROSIS PROPHYLAXIS
     Dosage: UNK
  35. MEPOLIZUMAB [Suspect]
     Active Substance: MEPOLIZUMAB
     Dosage: 200 MG
     Route: 058
     Dates: start: 20190304, end: 20190304
  36. MEPOLIZUMAB [Suspect]
     Active Substance: MEPOLIZUMAB
     Dosage: 200 MG
     Route: 058
     Dates: start: 20190401, end: 20190401
  37. MEPOLIZUMAB [Suspect]
     Active Substance: MEPOLIZUMAB
     Dosage: 300MG EVERY 4 WEEKS
     Route: 058
     Dates: start: 20191021, end: 20191021
  38. MEPOLIZUMAB [Suspect]
     Active Substance: MEPOLIZUMAB
     Dosage: 300MG EVERY 4 WEEKS
     Route: 058
     Dates: start: 20191216, end: 20191216
  39. PREDNISOLONE. [Concomitant]
     Active Substance: PREDNISOLONE
     Indication: AUTOIMMUNE HEPATITIS
     Dosage: 8 MG, 1D
     Dates: start: 20190205, end: 20190304
  40. PREDNISOLONE. [Concomitant]
     Active Substance: PREDNISOLONE
     Dosage: 7 MG, 1D
     Dates: start: 20190305, end: 20190401
  41. PREDNISOLONE. [Concomitant]
     Active Substance: PREDNISOLONE
     Dosage: 6 MG, 1D
     Dates: start: 20190402, end: 20190603
  42. PREDNISOLONE. [Concomitant]
     Active Substance: PREDNISOLONE
     Dosage: 2 MG, 1D
     Dates: start: 20190827, end: 20190925
  43. PREDNISOLONE. [Concomitant]
     Active Substance: PREDNISOLONE
     Dosage: 30 MG, 1D
     Dates: start: 20200831, end: 20200907
  44. AZANIN TABLETS [Concomitant]
     Dosage: 25 MG 1D
     Dates: start: 20200121, end: 20200217
  45. PITAVASTATIN CALCIUM [Concomitant]
     Active Substance: PITAVASTATIN CALCIUM
     Indication: DYSLIPIDAEMIA
     Dosage: UNK

REACTIONS (6)
  - Off label use [Unknown]
  - Alanine aminotransferase increased [Recovering/Resolving]
  - Malaise [Recovered/Resolved]
  - Prescribed underdose [Unknown]
  - Inappropriate schedule of product administration [Unknown]
  - Autoimmune hepatitis [Recovering/Resolving]

NARRATIVE: CASE EVENT DATE: 20190109
